FAERS Safety Report 13094924 (Version 9)
Quarter: 2019Q2

REPORT INFORMATION
  Report Type: Report from Study
  Country: US (occurrence: US)
  Receive Date: 20170106
  Receipt Date: 20190417
  Transmission Date: 20190711
  Serious: Yes (Hospitalization, Other)
  Sender: FDA-Public Use
  Company Number: US-ACTELION-A-US2017-147825

PATIENT
  Age: 58 Year
  Sex: Female

DRUGS (6)
  1. TRACLEER [Suspect]
     Active Substance: BOSENTAN
     Dosage: 62.5 MG, BID
     Route: 048
     Dates: start: 20190105
  2. TREPROSTINIL. [Concomitant]
     Active Substance: TREPROSTINIL
     Dosage: 5 MG, TID
     Route: 048
     Dates: start: 2017
  3. SILDENAFIL. [Concomitant]
     Active Substance: SILDENAFIL
     Dosage: 60 MG, TID
     Route: 048
     Dates: start: 20150529
  4. TRACLEER [Suspect]
     Active Substance: BOSENTAN
     Indication: PULMONARY HYPERTENSION
     Dosage: 62.5 MG, BID
     Route: 048
     Dates: start: 20150529
  5. TRACLEER [Suspect]
     Active Substance: BOSENTAN
     Dosage: 125 MG, BID
     Route: 048
     Dates: start: 20170413
  6. OXYGEN. [Concomitant]
     Active Substance: OXYGEN

REACTIONS (9)
  - Nasopharyngitis [Unknown]
  - Fluid retention [Unknown]
  - Pulmonary arterial pressure increased [Recovering/Resolving]
  - Oxygen saturation decreased [Recovered/Resolved]
  - Right ventricular failure [Recovered/Resolved]
  - Hypotension [Unknown]
  - Epistaxis [Unknown]
  - Dizziness [Recovered/Resolved]
  - Catheterisation cardiac abnormal [Recovering/Resolving]

NARRATIVE: CASE EVENT DATE: 20170426
